FAERS Safety Report 6190389-8 (Version None)
Quarter: 2009Q2

REPORT INFORMATION
  Report Type: 
  Country: None (occurrence: None)
  Receive Date: 20090514
  Receipt Date: 20090505
  Transmission Date: 20091009
  Serious: Yes (Hospitalization)
  Sender: FDA-Public Use
  Company Number: B0572761A

PATIENT
  Age: 32 Year
  Sex: Female

DRUGS (2)
  1. IMUREL [Suspect]
     Indication: CROHN'S DISEASE
     Route: 048
     Dates: start: 20080301, end: 20090127
  2. AUGMENTIN '125' [Suspect]
     Indication: HYPERTHERMIA
     Route: 048
     Dates: start: 20090126, end: 20090129

REACTIONS (8)
  - ASTHENIA [None]
  - CHILLS [None]
  - CYTOMEGALOVIRUS INFECTION [None]
  - GENERAL PHYSICAL HEALTH DETERIORATION [None]
  - HYPERTHERMIA [None]
  - PANCYTOPENIA [None]
  - RESPIRATORY DISTRESS [None]
  - WEIGHT DECREASED [None]
